FAERS Safety Report 7608739-1 (Version None)
Quarter: 2011Q3

REPORT INFORMATION
  Report Type: 
  Country: None (occurrence: None)
  Receive Date: 20110713
  Receipt Date: 20110713
  Transmission Date: 20111222
  Serious: Yes (Other)
  Sender: FDA-Public Use
  Company Number: None

PATIENT
  Sex: Male
  Weight: 90.7 kg

DRUGS (1)
  1. ACTEMRA [Suspect]
     Dosage: 4MG/KG Q4 WEEKS IV
     Route: 042
     Dates: start: 20110428, end: 20110430

REACTIONS (2)
  - DIZZINESS [None]
  - MUSCULOSKELETAL PAIN [None]
